FAERS Safety Report 6542648-4 (Version None)
Quarter: 2010Q1

REPORT INFORMATION
  Report Type: 
  Country: None (occurrence: None)
  Receive Date: 20100119
  Receipt Date: 20100107
  Transmission Date: 20100710
  Serious: Yes (Death, Hospitalization)
  Sender: FDA-Public Use
  Company Number: FR-ELI_LILLY_AND_COMPANY-FR201001000956

PATIENT
  Age: 89 Year
  Sex: Female

DRUGS (9)
  1. PROZAC [Suspect]
     Indication: DEPRESSION
     Dosage: 40 MG, DAILY (1/D)
     Route: 048
  2. BROMAZEPAM [Concomitant]
     Dosage: UNK, UNKNOWN
     Route: 048
  3. COVERSYL [Concomitant]
     Route: 048
  4. LEVOTHYROXINE SODIUM [Concomitant]
     Route: 048
  5. MIANSERIN /00390601/ [Concomitant]
     Route: 048
  6. MODOPAR [Concomitant]
     Route: 048
  7. FORLAX [Concomitant]
     Route: 048
  8. OSTRAM [Concomitant]
     Route: 048
  9. PREVISCAN [Concomitant]

REACTIONS (3)
  - CARDIO-RESPIRATORY ARREST [None]
  - CHOKING [None]
  - INTRA-ABDOMINAL HAEMATOMA [None]
